FAERS Safety Report 13010787 (Version 2)
Quarter: 2016Q4

REPORT INFORMATION
  Report Type: Spontaneous
  Country: SE (occurrence: SE)
  Receive Date: 20161208
  Receipt Date: 20161212
  Transmission Date: 20170207
  Serious: Yes (Hospitalization, Other)
  Sender: FDA-Public Use
  Company Number: PHHY2016SE168803

PATIENT
  Age: 54 Year
  Sex: Female

DRUGS (2)
  1. ALVEDON [Suspect]
     Active Substance: ACETAMINOPHEN
     Indication: PRODUCT USED FOR UNKNOWN INDICATION
     Dosage: 33.25 G, UNK 50 PCS
     Route: 048
     Dates: start: 20160107, end: 20160107
  2. DICLOFENAC [Suspect]
     Active Substance: DICLOFENAC
     Indication: PRODUCT USED FOR UNKNOWN INDICATION
     Dosage: 350 MG, UNK, 7 PC
     Route: 065
     Dates: start: 20160107, end: 20160107

REACTIONS (4)
  - Toxicity to various agents [Unknown]
  - Analgesic drug level increased [Unknown]
  - Intentional self-injury [Unknown]
  - Overdose [Unknown]

NARRATIVE: CASE EVENT DATE: 20160107
